FAERS Safety Report 18940626 (Version 1)
Quarter: 2021Q1

REPORT INFORMATION
  Report Type: Report from Study
  Country: US (occurrence: US)
  Receive Date: 20210225
  Receipt Date: 20210225
  Transmission Date: 20210420
  Serious: Yes (Other)
  Sender: FDA-Public Use
  Company Number: US-EMD SERONO-9158054

PATIENT
  Age: 61 Year
  Sex: Female

DRUGS (1)
  1. REBIF [Suspect]
     Active Substance: INTERFERON BETA-1A
     Indication: PRODUCT USED FOR UNKNOWN INDICATION
     Dosage: REBIF PREFILLED SYRINGE
     Route: 058
     Dates: start: 20030419

REACTIONS (7)
  - Nasal congestion [Unknown]
  - Influenza like illness [Unknown]
  - Injection site bruising [Unknown]
  - Tremor [Unknown]
  - Headache [Unknown]
  - Autoimmune thyroid disorder [Unknown]
  - Injection site erythema [Unknown]

NARRATIVE: CASE EVENT DATE: 20210216
